FAERS Safety Report 8524621-X (Version None)
Quarter: 2012Q3

REPORT INFORMATION
  Report Type: 
  Country: None (occurrence: None)
  Receive Date: 20120720
  Receipt Date: 20120706
  Transmission Date: 20120928
  Serious: Yes (Hospitalization)
  Sender: FDA-Public Use
  Company Number: US-ROCHE-1082041

PATIENT
  Age: 44 Year
  Sex: Male
  Weight: 65.058 kg

DRUGS (40)
  1. GANCICLOVIR SODIUM [Suspect]
     Dates: start: 20111123, end: 20111201
  2. ZOFRAN [Concomitant]
     Dates: start: 20111104, end: 20111104
  3. POTASSIUM PHOSPHATES [Concomitant]
     Dates: start: 20111026, end: 20111106
  4. RIFAXIMIN [Concomitant]
     Dates: end: 20111105
  5. POTASSIUM CHLORIDE [Concomitant]
     Dates: start: 20111031, end: 20111031
  6. ERYTHROMYCIN [Concomitant]
     Dates: start: 20111031, end: 20111104
  7. SOLU-MEDROL [Concomitant]
     Dates: start: 20111105, end: 20111110
  8. ZOSYN [Concomitant]
     Dates: start: 20111106, end: 20111114
  9. OLANZAPINE [Concomitant]
     Dates: start: 20111110
  10. FOLIC ACID [Concomitant]
     Dates: end: 20111104
  11. ACTIGALL [Concomitant]
     Dates: start: 20111105
  12. TYLENOL [Concomitant]
     Dates: start: 20111107, end: 20111112
  13. HALOPERIDOL [Concomitant]
     Dates: start: 20111115, end: 20111115
  14. NOREPINEPHRINE [Concomitant]
     Dates: start: 20111024
  15. GANCICLOVIR SODIUM [Suspect]
     Indication: PROPHYLAXIS
     Dosage: 65 MG-80 MG
     Route: 042
     Dates: start: 20111123, end: 20111201
  16. VERSED [Concomitant]
     Dates: start: 20111027
  17. TACROLIMUS [Suspect]
     Indication: IMMUNOSUPPRESSION
     Dosage: 0.25 MG-0.35 MG
     Route: 048
     Dates: start: 20111105
  18. BACTRIM [Concomitant]
     Dates: start: 20111105
  19. MYCOPHENOLATE MOFETIL [Concomitant]
     Dates: start: 20111105
  20. HEPATITIS B IMMUNE GLOBULIN (HUMAN) [Concomitant]
     Dates: start: 20111107, end: 20111112
  21. THROMBIN NOS [Concomitant]
     Dates: start: 20111116, end: 20111116
  22. FENTANYL [Concomitant]
     Dates: start: 20111025, end: 20111109
  23. LEVOFLOXACIN [Concomitant]
     Dates: end: 20111031
  24. PREDNISONE [Concomitant]
     Dates: start: 20111112
  25. ENTECAVIR [Concomitant]
     Dates: start: 20111107
  26. HYDROMORPHONE HCL [Concomitant]
     Dates: start: 20111108
  27. VANCOMYCIN [Concomitant]
     Dates: start: 20111113, end: 20111113
  28. THIAMINE [Concomitant]
     Dates: end: 20111104
  29. PRIMAXIN [Concomitant]
     Dates: end: 20111031
  30. DOCUSATE [Concomitant]
     Dates: end: 20111030
  31. PANTOPRAZOLE [Concomitant]
  32. SODIUM PHOSPHATE [Concomitant]
     Dates: start: 20111025
  33. NEOMYCIN SULFATE TAB [Concomitant]
     Dates: start: 20111031, end: 20111104
  34. UNASYN [Concomitant]
     Dates: start: 20111105, end: 20111105
  35. INSULIN [Concomitant]
     Dates: start: 20111031
  36. BLINDED ANIDULAFUNGIN [Suspect]
     Indication: ANTIFUNGAL PROPHYLAXIS
     Dates: start: 20111105
  37. LACTULOSE [Concomitant]
     Dates: end: 20111103
  38. ALBUMIN (HUMAN) [Concomitant]
  39. MAGNESIUM SULFATE [Concomitant]
     Dates: start: 20111030, end: 20111211
  40. BENADRYL [Concomitant]
     Dates: start: 20111107, end: 20111114

REACTIONS (2)
  - MENTAL STATUS CHANGES [None]
  - INTRA-ABDOMINAL HAEMORRHAGE [None]
